FAERS Safety Report 6942588-2 (Version None)
Quarter: 2010Q3

REPORT INFORMATION
  Report Type: 
  Country: None (occurrence: None)
  Receive Date: 20100826
  Receipt Date: 20100817
  Transmission Date: 20110219
  Serious: Yes (Death, Life-Threatening)
  Sender: FDA-Public Use
  Company Number: US-BAXTER-2010BH021738

PATIENT
  Age: 11 Year
  Sex: Male

DRUGS (1)
  1. VANCOMYCIN HCL [Suspect]
     Indication: RENAL DISORDER
     Route: 042

REACTIONS (3)
  - CARDIAC ARREST [None]
  - DEATH [None]
  - DEVICE MALFUNCTION [None]
